FAERS Safety Report 23012317 (Version 2)
Quarter: 2023Q4

REPORT INFORMATION
  Report Type: Report from Study
  Country: NL (occurrence: NL)
  Receive Date: 20230930
  Receipt Date: 20231005
  Transmission Date: 20240110
  Serious: Yes (Hospitalization, Other)
  Sender: FDA-Public Use
  Company Number: NL-ABBVIE-5426196

PATIENT
  Sex: Female

DRUGS (11)
  1. HUMIRA [Suspect]
     Active Substance: ADALIMUMAB
     Indication: Crohn^s disease
     Route: 058
     Dates: start: 2012, end: 201602
  2. PREDNISONE [Suspect]
     Active Substance: PREDNISONE
     Indication: Product used for unknown indication
     Route: 065
  3. AZATHIOPRINE [Suspect]
     Active Substance: AZATHIOPRINE
     Indication: Crohn^s disease
     Route: 065
     Dates: end: 2021
  4. AZATHIOPRINE [Suspect]
     Active Substance: AZATHIOPRINE
     Indication: Crohn^s disease
     Route: 065
     Dates: start: 2009
  5. PURINETHOL [Suspect]
     Active Substance: MERCAPTOPURINE
     Indication: Crohn^s disease
     Route: 065
     Dates: end: 2016
  6. USTEKINUMAB [Suspect]
     Active Substance: USTEKINUMAB
     Indication: Crohn^s disease
     Route: 065
     Dates: start: 20201117
  7. VEDOLIZUMAB [Suspect]
     Active Substance: VEDOLIZUMAB
     Indication: Crohn^s disease
     Route: 065
     Dates: start: 202301
  8. VEDOLIZUMAB [Suspect]
     Active Substance: VEDOLIZUMAB
     Indication: Crohn^s disease
     Route: 065
     Dates: start: 202302
  9. GADOLINIUM [Suspect]
     Active Substance: GADOLINIUM
     Indication: Magnetic resonance imaging
     Route: 065
  10. INFLIXIMAB [Suspect]
     Active Substance: INFLIXIMAB
     Indication: Crohn^s disease
     Route: 065
     Dates: start: 201603, end: 202008
  11. INFLIXIMAB [Suspect]
     Active Substance: INFLIXIMAB
     Indication: Crohn^s disease
     Route: 065
     Dates: start: 2021

REACTIONS (26)
  - Bauhin^s valve syndrome [Recovered/Resolved]
  - Gastrointestinal wall thickening [Unknown]
  - Condition aggravated [Unknown]
  - Adverse drug reaction [Unknown]
  - Hunger [Unknown]
  - Ileus [Unknown]
  - Ileocaecal resection [Unknown]
  - Hernia [Unknown]
  - Drug level decreased [Unknown]
  - Ileocaecal resection [Unknown]
  - Therapeutic product effect decreased [Not Recovered/Not Resolved]
  - Terminal ileitis [Not Recovered/Not Resolved]
  - Oedema mucosal [Not Recovered/Not Resolved]
  - Crohn^s disease [Unknown]
  - Ulcer [Unknown]
  - Anastomotic stenosis [Unknown]
  - Faecal calprotectin increased [Unknown]
  - Unevaluable event [Not Recovered/Not Resolved]
  - Terminal ileitis [Unknown]
  - Drug ineffective [Unknown]
  - Stenosis [Unknown]
  - Mucosal hyperaemia [Not Recovered/Not Resolved]
  - Adverse drug reaction [Unknown]
  - Post procedural inflammation [Unknown]
  - Hospitalisation [Unknown]
  - Investigation abnormal [Unknown]

NARRATIVE: CASE EVENT DATE: 20170101
